FAERS Safety Report 8852839 (Version 1)
Quarter: 2012Q4

REPORT INFORMATION
  Report Type: 
  Country: US (occurrence: US)
  Receive Date: 20121022
  Receipt Date: 20121022
  Transmission Date: 20130627
  Serious: No
  Sender: FDA-Public Use
  Company Number: US-VERTEX PHARMACEUTICAL INC.-2012-022932

PATIENT
  Age: 29 None
  Sex: Male

DRUGS (4)
  1. INCIVEK [Suspect]
     Indication: HEPATITIS C
     Dosage: 750 mg, tid
     Route: 048
     Dates: start: 201208
  2. RIBAVIRIN [Suspect]
     Indication: HEPATITIS C
     Dosage: 600 mg, bid
     Dates: start: 201208
  3. PEGASYS [Suspect]
     Indication: HEPATITIS C
     Dosage: 180 ?g, weekly
     Route: 058
     Dates: start: 201208
  4. PEGASYS [Suspect]
     Dosage: 90?g, weekly
     Route: 058

REACTIONS (3)
  - White blood cell count decreased [Unknown]
  - Platelet count decreased [Unknown]
  - Pruritus [Not Recovered/Not Resolved]
